FAERS Safety Report 6530821-0 (Version None)
Quarter: 2010Q1

REPORT INFORMATION
  Report Type: 
  Country: None (occurrence: None)
  Receive Date: 20100108
  Receipt Date: 20090318
  Transmission Date: 20100710
  Serious: No
  Sender: FDA-Public Use
  Company Number: A0774023A

PATIENT
  Age: 58 Year
  Sex: Female

DRUGS (7)
  1. LOVAZA [Suspect]
     Indication: HIGH DENSITY LIPOPROTEIN DECREASED
     Dosage: 3000MG PER DAY
     Route: 048
     Dates: start: 20080101
  2. PLAVIX [Suspect]
  3. METOPROLOL TARTRATE [Concomitant]
  4. DIOVAN [Concomitant]
  5. HYDROCHLOROTHIAZIDE [Concomitant]
  6. CRESTOR [Concomitant]
  7. ASPIRIN [Concomitant]

REACTIONS (2)
  - DYSPEPSIA [None]
  - GASTRIC DISORDER [None]
